FAERS Safety Report 9345402 (Version 2)
Quarter: 2016Q1

REPORT INFORMATION
  Report Type: Report from Study
  Country: US (occurrence: US)
  Receive Date: 20130613
  Receipt Date: 20160315
  Transmission Date: 20160526
  Serious: Yes (Hospitalization, Other)
  Sender: FDA-Public Use
  Company Number: US-ROCHE-1235398

PATIENT
  Age: 23 Year
  Sex: Female

DRUGS (13)
  1. KETOROLAC [Suspect]
     Active Substance: KETOROLAC\KETOROLAC TROMETHAMINE
     Indication: PRODUCT USED FOR UNKNOWN INDICATION
     Route: 065
  2. TRILEPTAL [Concomitant]
     Active Substance: OXCARBAZEPINE
     Dosage: 1 TABLET BY MOUTH TWO TIMES PER DAY
     Route: 048
     Dates: start: 20130401
  3. FLEXERIL [Concomitant]
     Active Substance: CYCLOBENZAPRINE HYDROCHLORIDE
     Dosage: 1 TABLET THREE TIMES PER DAY.
     Route: 048
     Dates: start: 20130326
  4. PREDNISONE. [Concomitant]
     Active Substance: PREDNISONE
     Dosage: 5 TABS EVERY DAY WITH BREAKFAST
     Route: 048
  5. CELLCEPT [Suspect]
     Active Substance: MYCOPHENOLATE MOFETIL\MYCOPHENOLATE MOFETIL HYDROCHLORIDE
     Dosage: TAKE 3 TABS PO BID (TOTAL 1500 MG)
     Route: 048
     Dates: start: 20130425
  6. CELEXA (UNITED STATES) [Concomitant]
     Dosage: 1.5 TABS BY MOUTH ONCE PER DAY.
     Route: 048
     Dates: start: 20130429
  7. ADVIL [Concomitant]
     Active Substance: IBUPROFEN
     Dosage: TAKE 200MG BY MOUTH EVERY 6 HOURS AS NEEDED.
     Route: 048
  8. TOBRADEX [Concomitant]
     Active Substance: DEXAMETHASONE\TOBRAMYCIN
     Dosage: PLACE 1 APPLICATION IN THE EYE FOUR TIMES PER DAY. DOSE VALUE : 0.3-0.1 %
     Route: 047
     Dates: start: 20121204
  9. PREDNISONE. [Concomitant]
     Active Substance: PREDNISONE
     Route: 065
     Dates: start: 20130516
  10. CELLCEPT [Suspect]
     Active Substance: MYCOPHENOLATE MOFETIL\MYCOPHENOLATE MOFETIL HYDROCHLORIDE
     Indication: PRODUCT USED FOR UNKNOWN INDICATION
     Route: 048
     Dates: start: 201212
  11. NORCO [Concomitant]
     Active Substance: ACETAMINOPHEN\HYDROCODONE BITARTRATE
     Dosage: 1-2 TABS Q 6 HRS AS NEEDED, DOES VALUE : 10-325 MG
     Route: 048
     Dates: start: 20130429
  12. PREDNISONE. [Concomitant]
     Active Substance: PREDNISONE
     Dosage: 2.5 TABS BY MOUTH TWO TIMES PER DAY WITH MEALS
     Route: 048
  13. CELEXA (UNITED STATES) [Concomitant]
     Dosage: 1.5 TABS BY MOUTH ONCE PER DAY.
     Route: 048
     Dates: start: 20130312

REACTIONS (18)
  - Acne [Unknown]
  - Nasal septum perforation [Unknown]
  - Pain in jaw [Unknown]
  - Conjunctival hyperaemia [Unknown]
  - Sinusitis [Unknown]
  - Epistaxis [Unknown]
  - Red blood cell sedimentation rate increased [Unknown]
  - Otitis media acute [Unknown]
  - Post procedural haemorrhage [Unknown]
  - Scleritis [Unknown]
  - Necrosis [Unknown]
  - Rhinitis perennial [Unknown]
  - Iridocyclitis [Unknown]
  - Iron deficiency [Unknown]
  - Allergic sinusitis [Unknown]
  - Normochromic normocytic anaemia [Unknown]
  - Ear pain [Unknown]
  - Headache [Recovered/Resolved]

NARRATIVE: CASE EVENT DATE: 201305
